FAERS Safety Report 17112012 (Version 1)
Quarter: 2019Q4

REPORT INFORMATION
  Report Type: Report from Study
  Country: JP (occurrence: JP)
  Receive Date: 20191204
  Receipt Date: 20191204
  Transmission Date: 20200122
  Serious: Yes (Life-Threatening, Other)
  Sender: FDA-Public Use
  Company Number: JP-GILEAD-2019-0439459

PATIENT
  Age: 71 Year
  Sex: Female
  Weight: 43 kg

DRUGS (14)
  1. SENNOSIDES. [Concomitant]
     Active Substance: SENNOSIDES
     Indication: DISEASE COMPLICATION
     Dosage: UNK
     Route: 048
     Dates: start: 20190528
  2. MONILAC [Concomitant]
     Active Substance: LACTULOSE
     Indication: HEPATIC CIRRHOSIS
     Dosage: UNK
     Route: 048
     Dates: start: 20190528
  3. SPIRONOLACTONE. [Concomitant]
     Active Substance: SPIRONOLACTONE
     Indication: HEPATIC CIRRHOSIS
     Dosage: UNK
     Route: 048
     Dates: start: 20190529
  4. KANAMYCIN [Concomitant]
     Active Substance: KANAMYCIN A SULFATE
     Indication: HEPATIC CIRRHOSIS
     Dosage: UNK
     Route: 048
     Dates: start: 20190528
  5. BRANUTE [Concomitant]
     Indication: HEPATIC CIRRHOSIS
     Dosage: UNK
     Route: 048
     Dates: start: 20190528
  6. JANUVIA [Concomitant]
     Active Substance: SITAGLIPTIN PHOSPHATE
     Indication: DISEASE COMPLICATION
     Dosage: UNK
     Route: 048
     Dates: start: 20190529
  7. INSULIN GLARGINE [Concomitant]
     Active Substance: INSULIN GLARGINE
     Indication: DISEASE COMPLICATION
     Dosage: UNK
     Route: 058
  8. SAMSCA [Concomitant]
     Active Substance: TOLVAPTAN
     Indication: HEPATIC CIRRHOSIS
     Dosage: UNK
     Route: 048
     Dates: start: 20190529
  9. SOFOSBUVIR W/VELPATASVIR [Suspect]
     Active Substance: SOFOSBUVIR\VELPATASVIR
     Indication: HEPATITIS C
     Dosage: 1 DOSAGE FORM, QD
     Route: 048
     Dates: start: 20190528, end: 20190819
  10. FUROSEMIDE. [Concomitant]
     Active Substance: FUROSEMIDE
     Indication: HEPATIC CIRRHOSIS
     Dosage: UNK
     Route: 048
     Dates: start: 20190529
  11. MAGMITT [Concomitant]
     Active Substance: MAGNESIUM OXIDE
     Indication: DISEASE COMPLICATION
     Dosage: UNK
     Route: 048
     Dates: start: 20190528
  12. SOFOSBUVIR W/VELPATASVIR [Suspect]
     Active Substance: SOFOSBUVIR\VELPATASVIR
     Indication: HEPATIC CIRRHOSIS
  13. GLIMEPIRIDE. [Concomitant]
     Active Substance: GLIMEPIRIDE
     Indication: DISEASE COMPLICATION
     Dosage: UNK
     Route: 048
     Dates: start: 20190529
  14. VOGLIBOSE SW [Concomitant]
     Indication: DISEASE COMPLICATION
     Dosage: UNK
     Route: 048

REACTIONS (2)
  - Hepatocellular carcinoma [Unknown]
  - Duodenal ulcer [Recovering/Resolving]

NARRATIVE: CASE EVENT DATE: 20191025
